FAERS Safety Report 4634656-5 (Version None)
Quarter: 2005Q2

REPORT INFORMATION
  Report Type: 
  Country: None (occurrence: None)
  Receive Date: 20050411
  Receipt Date: 20050329
  Transmission Date: 20051028
  Serious: Yes (Life-Threatening)
  Sender: FDA-Public Use
  Company Number: SP-2005-002129

PATIENT
  Age: 73 Year
  Sex: Female

DRUGS (1)
  1. PLAUNAC [Suspect]
     Indication: HYPERTENSION
     Dosage: 20 MG QD PO
     Route: 048
     Dates: start: 20050214, end: 20050216

REACTIONS (1)
  - PHARYNGEAL OEDEMA [None]
